FAERS Safety Report 8229215-1 (Version None)
Quarter: 2012Q1

REPORT INFORMATION
  Report Type: 
  Country: None (occurrence: None)
  Receive Date: 20120322
  Receipt Date: 20120313
  Transmission Date: 20120608
  Serious: Yes (Hospitalization)
  Sender: FDA-Public Use
  Company Number: JP-BRISTOL-MYERS SQUIBB COMPANY-16293086

PATIENT
  Age: 76 Year
  Sex: Female

DRUGS (7)
  1. ALENDRONATE SODIUM [Concomitant]
  2. SULFASALAZINE [Concomitant]
     Indication: RHEUMATOID ARTHRITIS
  3. LOXONIN [Concomitant]
     Indication: RHEUMATOID ARTHRITIS
  4. ORENCIA [Suspect]
     Indication: RHEUMATOID ARTHRITIS
     Dosage: INFU DTS 27MAY11,16JUN11,8JUL11,5AUG11 STOPPED REST ON 6JAN12
     Route: 041
     Dates: start: 20110513
  5. METHOTREXATE [Suspect]
     Indication: RHEUMATOID ARTHRITIS
     Dates: start: 20101201, end: 20110902
  6. PREDNISOLONE [Concomitant]
     Indication: RHEUMATOID ARTHRITIS
     Route: 048
  7. FERROUS CITRATE [Concomitant]
     Indication: RHEUMATOID ARTHRITIS

REACTIONS (1)
  - INTERSTITIAL LUNG DISEASE [None]
